FAERS Safety Report 5141830-0 (Version None)
Quarter: 2006Q4

REPORT INFORMATION
  Report Type: 
  Country: None (occurrence: None)
  Receive Date: 20061027
  Receipt Date: 20061013
  Transmission Date: 20070319
  Serious: Yes (Death)
  Sender: FDA-Public Use
  Company Number: 2006RR-04140

PATIENT
  Age: 49 Year
  Sex: Female

DRUGS (5)
  1. IBUPROFEN [Suspect]
     Indication: ENCEPHALOPATHY
     Dosage: 3 DF, QD, TOPICAL
     Route: 061
     Dates: start: 20060804, end: 20060807
  2. AMITRIPTYLINE HCL [Concomitant]
  3. BETAMETHASONE [Concomitant]
  4. LACTULOSE (LACTULOSE) LIQUID [Concomitant]
  5. SPIRONOLACTONE (SPIRONOLACTONE) TABLET [Concomitant]

REACTIONS (2)
  - ENCEPHALOPATHY [None]
  - GASTRITIS HAEMORRHAGIC [None]
